FAERS Safety Report 6516633-2 (Version None)
Quarter: 2009Q4

REPORT INFORMATION
  Report Type: 
  Country: None (occurrence: None)
  Receive Date: 20091223
  Receipt Date: 20091210
  Transmission Date: 20100525
  Serious: Yes (Other)
  Sender: FDA-Public Use
  Company Number: US-PFIZER INC-2008061565

PATIENT
  Sex: Female

DRUGS (1)
  1. DILANTIN-125 [Suspect]
     Indication: CONVULSION
     Dosage: UNK
     Dates: start: 19820101

REACTIONS (6)
  - BRAIN OPERATION [None]
  - DENTAL CARIES [None]
  - GINGIVAL DISORDER [None]
  - MEMORY IMPAIRMENT [None]
  - OSTEOPOROSIS [None]
  - TOOTH DISORDER [None]
